FAERS Safety Report 15689538 (Version 1)
Quarter: 2018Q4

REPORT INFORMATION
  Report Type: Spontaneous
  Country: US (occurrence: US)
  Receive Date: 20181205
  Receipt Date: 20181205
  Transmission Date: 20190205
  Serious: No
  Sender: FDA-Public Use
  Company Number: US-VIIV HEALTHCARE LIMITED-US2018215177

PATIENT
  Sex: Female

DRUGS (1)
  1. EPIVIR [Suspect]
     Active Substance: LAMIVUDINE

REACTIONS (1)
  - Maternal exposure during breast feeding [Unknown]
